FAERS Safety Report 5760204-2 (Version None)
Quarter: 2008Q2

REPORT INFORMATION
  Report Type: 
  Country: None (occurrence: None)
  Receive Date: 20080602
  Receipt Date: 20080526
  Transmission Date: 20081010
  Serious: Yes (Hospitalization)
  Sender: FDA-Public Use
  Company Number: 2008SP009866

PATIENT
  Age: 21 Year
  Sex: Female
  Weight: 55.5 kg

DRUGS (1)
  1. PEG-INTRON [Suspect]
     Indication: HEPATITIS B
     Dosage: 50 MCG, QW, SC
     Route: 058
     Dates: start: 20071213, end: 20080522

REACTIONS (3)
  - HALLUCINATION [None]
  - HYPERPHAGIA [None]
  - INSOMNIA [None]
